FAERS Safety Report 6019662-0 (Version None)
Quarter: 2008Q4

REPORT INFORMATION
  Report Type: 
  Country: None (occurrence: None)
  Receive Date: 20081223
  Receipt Date: 20080121
  Transmission Date: 20090506
  Serious: Yes (Other)
  Sender: FDA-Public Use
  Company Number: US-WYE-H02287908

PATIENT
  Age: 64 Year
  Sex: Female
  Weight: 102.15 kg

DRUGS (2)
  1. PRIMATENE MIST [Suspect]
     Indication: ASTHMA
     Dosage: ^1 INHALATION X 1^, INHALATION
     Route: 055
     Dates: start: 20080101, end: 20080101
  2. THYROID TAB [Concomitant]

REACTIONS (3)
  - GLOSSODYNIA [None]
  - HEADACHE [None]
  - NASAL DISCOMFORT [None]
